FAERS Safety Report 15993996 (Version 1)
Quarter: 2019Q1

REPORT INFORMATION
  Report Type: Report from Study
  Country: None (occurrence: KR)
  Receive Date: 20190222
  Receipt Date: 20190222
  Transmission Date: 20190418
  Serious: Yes (Other)
  Sender: FDA-Public Use
  Company Number: KR-ABBVIE-19K-090-2675283-00

PATIENT

DRUGS (1)
  1. HUMIRA [Suspect]
     Active Substance: ADALIMUMAB
     Indication: ANKYLOSING SPONDYLITIS
     Route: 058

REACTIONS (108)
  - Neutropenia [Not Recovered/Not Resolved]
  - Vertigo positional [Recovered/Resolved]
  - Enteritis [Recovered/Resolved]
  - Gastric polyps [Not Recovered/Not Resolved]
  - Spinal compression fracture [Recovered/Resolved with Sequelae]
  - Transaminases increased [Not Recovered/Not Resolved]
  - Weight increased [Not Recovered/Not Resolved]
  - Myelopathy [Recovered/Resolved]
  - Carpal tunnel syndrome [Not Recovered/Not Resolved]
  - Sleep apnoea syndrome [Not Recovered/Not Resolved]
  - Psoriasis [Not Recovered/Not Resolved]
  - Onychomycosis [Recovered/Resolved]
  - Carpal tunnel syndrome [Recovered/Resolved]
  - Acute sinusitis [Recovered/Resolved]
  - Ligament injury [Recovered/Resolved]
  - Rib fracture [Not Recovered/Not Resolved]
  - Flank pain [Recovered/Resolved]
  - Bipolar disorder [Not Recovered/Not Resolved]
  - Urethritis [Not Recovered/Not Resolved]
  - Injection related reaction [Not Recovered/Not Resolved]
  - Wolff-Parkinson-White syndrome [Not Recovered/Not Resolved]
  - Arteriosclerosis coronary artery [Not Recovered/Not Resolved]
  - Dry eye [Not Recovered/Not Resolved]
  - Infusion related reaction [Not Recovered/Not Resolved]
  - Hepatic steatosis [Not Recovered/Not Resolved]
  - Parotitis [Recovered/Resolved]
  - Pneumonia [Recovered/Resolved]
  - Ankle fracture [Recovered/Resolved]
  - Hyperlipidaemia [Not Recovered/Not Resolved]
  - Enthesopathy [Not Recovered/Not Resolved]
  - Syncope [Recovered/Resolved]
  - Benign prostatic hyperplasia [Not Recovered/Not Resolved]
  - Breast calcifications [Not Recovered/Not Resolved]
  - Rhinitis allergic [Not Recovered/Not Resolved]
  - Hidradenitis [Not Recovered/Not Resolved]
  - Pruritus [Recovered/Resolved]
  - Parotid gland enlargement [Recovered/Resolved]
  - Anaemia [Not Recovered/Not Resolved]
  - Diarrhoea [Recovered/Resolved]
  - Dyspepsia [Recovered/Resolved]
  - Fatigue [Recovered/Resolved]
  - Lower limb fracture [Recovered/Resolved]
  - Facial bones fracture [Recovered/Resolved]
  - Myofascial pain syndrome [Not Recovered/Not Resolved]
  - Depression [Not Recovered/Not Resolved]
  - Asthma [Not Recovered/Not Resolved]
  - Nasopharyngitis [Recovered/Resolved]
  - Seborrhoea [Not Recovered/Not Resolved]
  - Hip arthroplasty [Recovered/Resolved]
  - Cataract [Recovered/Resolved]
  - Angina pectoris [Not Recovered/Not Resolved]
  - Uveitis [Recovered/Resolved]
  - Conjunctivitis allergic [Not Recovered/Not Resolved]
  - Dyspepsia [Not Recovered/Not Resolved]
  - Salivary gland pain [Recovered/Resolved]
  - Gastrooesophageal reflux disease [Not Recovered/Not Resolved]
  - Peripheral swelling [Not Recovered/Not Resolved]
  - Liver disorder [Recovered/Resolved]
  - Influenza [Recovered/Resolved]
  - Epicondylitis [Not Recovered/Not Resolved]
  - Intervertebral disc protrusion [Recovered/Resolved]
  - Plantar fasciitis [Not Recovered/Not Resolved]
  - Joint range of motion decreased [Not Recovered/Not Resolved]
  - Musculoskeletal pain [Not Recovered/Not Resolved]
  - Spondylolisthesis [Not Recovered/Not Resolved]
  - Haematuria [Recovered/Resolved]
  - Ankylosing spondylitis [Recovered/Resolved with Sequelae]
  - Arrhythmia [Recovered/Resolved]
  - Sinusitis [Recovered/Resolved]
  - Cellulitis [Recovered/Resolved]
  - Thoracic vertebral fracture [Recovered/Resolved with Sequelae]
  - Dactylitis [Unknown]
  - Osteoarthritis [Not Recovered/Not Resolved]
  - Alcohol use disorder [Not Recovered/Not Resolved]
  - Dyspnoea [Recovered/Resolved]
  - Pneumothorax [Recovered/Resolved]
  - Neurodermatitis [Recovered/Resolved]
  - Joint injection [Not Recovered/Not Resolved]
  - Hypertension [Not Recovered/Not Resolved]
  - Acute coronary syndrome [Recovered/Resolved]
  - Chest discomfort [Recovered/Resolved]
  - Keratitis [Not Recovered/Not Resolved]
  - Gastritis erosive [Not Recovered/Not Resolved]
  - Lung infection [Recovered/Resolved]
  - Gout [Not Recovered/Not Resolved]
  - Obesity [Not Recovered/Not Resolved]
  - Arthritis [Recovered/Resolved]
  - Fibromyalgia [Recovered/Resolved]
  - Osteoporosis [Not Recovered/Not Resolved]
  - Insomnia [Recovered/Resolved]
  - Suicide attempt [Recovered/Resolved]
  - Hypersensitivity [Recovered/Resolved]
  - Spinal ligament ossification [Recovered/Resolved]
  - Myocardial infarction [Recovered/Resolved]
  - Glaucoma [Not Recovered/Not Resolved]
  - Haematochezia [Recovered/Resolved]
  - Irritable bowel syndrome [Recovered/Resolved]
  - Hyperchlorhydria [Not Recovered/Not Resolved]
  - Herpes zoster [Not Recovered/Not Resolved]
  - Blood creatinine increased [Not Recovered/Not Resolved]
  - Blood uric acid increased [Not Recovered/Not Resolved]
  - Type 2 diabetes mellitus [Not Recovered/Not Resolved]
  - Osteopenia [Not Recovered/Not Resolved]
  - Spinal column stenosis [Not Recovered/Not Resolved]
  - Lipoma [Not Recovered/Not Resolved]
  - Cognitive disorder [Not Recovered/Not Resolved]
  - Upper respiratory tract infection [Recovered/Resolved]
  - Behcet^s syndrome [Not Recovered/Not Resolved]
